FAERS Safety Report 9619444 (Version 1)
Quarter: 2013Q4

REPORT INFORMATION
  Report Type: Spontaneous
  Country: US (occurrence: US)
  Receive Date: 20131014
  Receipt Date: 20131014
  Transmission Date: 20140711
  Serious: Yes (Death)
  Sender: FDA-Public Use
  Company Number: US-NOVEN-13US007830

PATIENT
  Age: 22 Year
  Sex: Male

DRUGS (11)
  1. FENTANYL [Suspect]
     Indication: PAIN
     Dosage: 100UG/HR Q 3 DAYS (2 X 50UG PATCHES)
     Route: 062
     Dates: start: 20130723, end: 20130727
  2. VALIUM                             /00017001/ [Concomitant]
     Indication: WITHDRAWAL SYNDROME
     Dosage: UNK
  3. HYDROMORPHONE [Concomitant]
     Indication: PRODUCT USED FOR UNKNOWN INDICATION
     Dosage: UNK
  4. LEXAPRO [Concomitant]
     Indication: DEPRESSION
  5. GABAPENTIN [Concomitant]
     Indication: NEURALGIA
     Dosage: UNK
  6. VISTARIL                           /00058402/ [Concomitant]
     Indication: ANXIETY
     Dosage: UNK
  7. MELATONIN [Concomitant]
     Indication: INSOMNIA
     Dosage: UNK
  8. TYLENOL                            /00020001/ [Concomitant]
     Indication: PRODUCT USED FOR UNKNOWN INDICATION
  9. MULTIVITAMIN                       /00097801/ [Concomitant]
     Indication: PRODUCT USED FOR UNKNOWN INDICATION
  10. MIRALAX                            /00754501/ [Concomitant]
     Indication: CONSTIPATION
     Dosage: UNK
  11. MIRALAX                            /00754501/ [Concomitant]
     Indication: DRUG ABUSE

REACTIONS (2)
  - Death [Fatal]
  - Inappropriate schedule of drug administration [Unknown]
